FAERS Safety Report 24354197 (Version 1)
Quarter: 2024Q3

REPORT INFORMATION
  Report Type: Spontaneous
  Country: US (occurrence: US)
  Receive Date: 20240923
  Receipt Date: 20240923
  Transmission Date: 20241017
  Serious: No
  Sender: MERCK
  Company Number: US-009507513-2409USA006737

PATIENT
  Sex: Female
  Weight: 87.1 kg

DRUGS (12)
  1. WINREVAIR [Suspect]
     Active Substance: SOTATERCEPT-CSRK
     Indication: Product used for unknown indication
  2. REMODULIN [Suspect]
     Active Substance: TREPROSTINIL
     Indication: Pulmonary arterial hypertension
     Dosage: 0.029 MICROGRAM PER , CONTINUING
     Route: 041
     Dates: start: 20230807
  3. VITAMIN D2 [Concomitant]
     Active Substance: ERGOCALCIFEROL
  4. TYLENOL [Concomitant]
     Active Substance: ACETAMINOPHEN
  5. OPSUMIT [Concomitant]
     Active Substance: MACITENTAN
  6. BUPROPION HYDROCHLORIDE [Concomitant]
     Active Substance: BUPROPION HYDROCHLORIDE
  7. SPIRONOLACTONE [Concomitant]
     Active Substance: SPIRONOLACTONE
  8. SKIN HAIR NAILS [Concomitant]
  9. DIGOXIN [Concomitant]
     Active Substance: DIGOXIN
  10. TORSEMIDE [Concomitant]
     Active Substance: TORSEMIDE
  11. VITAMINS [Concomitant]
     Active Substance: VITAMINS
  12. TADALAFIL [Concomitant]
     Active Substance: TADALAFIL

REACTIONS (1)
  - Platelet count decreased [Unknown]
